FAERS Safety Report 6526053-2 (Version None)
Quarter: 2009Q4

REPORT INFORMATION
  Report Type: 
  Country: None (occurrence: None)
  Receive Date: 20091224
  Receipt Date: 20091216
  Transmission Date: 20100525
  Serious: Yes (Other)
  Sender: FDA-Public Use
  Company Number: 2009003871

PATIENT
  Sex: Female

DRUGS (6)
  1. TARCEVA [Suspect]
     Indication: NON-SMALL CELL LUNG CANCER
     Dosage: (150 MG, QD), ORAL
     Route: 048
     Dates: start: 20091005
  2. BISOPROLOL FUMARATE [Concomitant]
  3. RAMIPRIL [Concomitant]
  4. LEVOTHYROXINE SODIUM [Concomitant]
  5. ACENOCUMAROL [Concomitant]
  6. SIMVASTATIN [Concomitant]

REACTIONS (3)
  - EYE IRRITATION [None]
  - EYE PAIN [None]
  - LACRIMATION INCREASED [None]
